FAERS Safety Report 4708011-3 (Version None)
Quarter: 2005Q3

REPORT INFORMATION
  Report Type: 
  Country: None (occurrence: None)
  Receive Date: 20050707
  Receipt Date: 20050629
  Transmission Date: 20060218
  Serious: Yes (Other)
  Sender: FDA-Public Use
  Company Number: US-BRISTOL-MYERS SQUIBB COMPANY-13020771

PATIENT
  Age: 73 Year
  Sex: Male
  Weight: 78 kg

DRUGS (2)
  1. CETUXIMAB [Suspect]
     Indication: PANCREATIC CARCINOMA
     Dosage: COURSE 1: COURSE 1 START DATE 06-JUN-05. GIVEN ON 20-JUN-05. TOTAL DOSE THIS COURSE 1782 MG.
     Dates: start: 20050601, end: 20050601
  2. GEMCITABINE HCL [Suspect]
     Indication: PANCREATIC CARCINOMA
     Dosage: COURSE 1: COURSE 1 START DATE 06-JUN-05, + GIVEN 20-JUN-05,  TOTAL DOSE THIS COURSE 4950 MG.
     Dates: start: 20050601, end: 20050601

REACTIONS (2)
  - DEEP VEIN THROMBOSIS [None]
  - PULMONARY EMBOLISM [None]
